FAERS Safety Report 15566047 (Version 1)
Quarter: 2018Q4

REPORT INFORMATION
  Report Type: Spontaneous
  Country: US (occurrence: US)
  Receive Date: 20181025
  Receipt Date: 20181025
  Transmission Date: 20190205
  Serious: Yes (Death, Hospitalization)
  Sender: FDA-Public Use
  Company Number: None

PATIENT
  Age: 17 Year
  Sex: Male
  Weight: 107.7 kg

DRUGS (5)
  1. DAUNORUBICIN [Suspect]
     Active Substance: DAUNORUBICIN
     Dates: end: 20180921
  2. PREDNISONE. [Suspect]
     Active Substance: PREDNISONE
     Dates: end: 20180924
  3. GLEEVEC [Suspect]
     Active Substance: IMATINIB MESYLATE
     Dates: end: 20180924
  4. METHOTREXATE. [Suspect]
     Active Substance: METHOTREXATE
     Dates: end: 20181019
  5. VINCRISTINE SULFATE. [Suspect]
     Active Substance: VINCRISTINE SULFATE
     Dates: end: 20180921

REACTIONS (27)
  - Febrile neutropenia [None]
  - Pleural effusion [None]
  - Pallor [None]
  - Ventricular fibrillation [None]
  - Intra-abdominal fluid collection [None]
  - Pulseless electrical activity [None]
  - Blood lactic acid increased [None]
  - Tachypnoea [None]
  - Oesophageal perforation [None]
  - Necrosis [None]
  - Blood pressure immeasurable [None]
  - Fluid overload [None]
  - Venoocclusive liver disease [None]
  - Haematocrit decreased [None]
  - Pupil fixed [None]
  - Pulse absent [None]
  - Respiratory arrest [None]
  - Pupillary reflex impaired [None]
  - Gastritis bacterial [None]
  - Rectal haemorrhage [None]
  - Dyspnoea [None]
  - Mucormycosis [None]
  - Haemoglobin decreased [None]
  - Blood pH decreased [None]
  - Respiratory distress [None]
  - Gastric perforation [None]
  - Heart rate increased [None]

NARRATIVE: CASE EVENT DATE: 20181016
